FAERS Safety Report 7490134-X (Version None)
Quarter: 2011Q2

REPORT INFORMATION
  Report Type: 
  Country: None (occurrence: None)
  Receive Date: 20110519
  Receipt Date: 20110516
  Transmission Date: 20111010
  Serious: No
  Sender: FDA-Public Use
  Company Number: US-PFIZER INC-2011104932

PATIENT
  Sex: Female
  Weight: 78.5 kg

DRUGS (3)
  1. CELEBREX [Suspect]
     Indication: ARTHRITIS
     Dosage: 200 MG, DAILY
     Route: 048
     Dates: start: 20110512, end: 20110514
  2. INSULIN [Concomitant]
     Dosage: UNK
  3. TOPROL-XL [Concomitant]
     Dosage: UNK

REACTIONS (5)
  - RASH [None]
  - URTICARIA [None]
  - VISUAL IMPAIRMENT [None]
  - PRURITUS [None]
  - HYPERSENSITIVITY [None]
